FAERS Safety Report 15030439 (Version 1)
Quarter: 2018Q2

REPORT INFORMATION
  Report Type: Spontaneous
  Country: DE (occurrence: DE)
  Receive Date: 20180619
  Receipt Date: 20180619
  Transmission Date: 20180711
  Serious: Yes (Other)
  Sender: FDA-Public Use
  Company Number: DE-ASTRAZENECA-2018SE78162

PATIENT
  Sex: Female

DRUGS (3)
  1. BRILIQUE [Suspect]
     Active Substance: TICAGRELOR
     Indication: CORONARY ARTERIAL STENT INSERTION
     Route: 048
     Dates: start: 2018
  2. BRILIQUE [Suspect]
     Active Substance: TICAGRELOR
     Indication: ACUTE MYOCARDIAL INFARCTION
     Route: 048
     Dates: start: 2018
  3. ASPIRIN. [Concomitant]
     Active Substance: ASPIRIN
     Dosage: 100 MG
     Dates: start: 2018

REACTIONS (4)
  - Angina pectoris [Unknown]
  - Nausea [Unknown]
  - Troponin increased [Unknown]
  - Platelet count increased [Unknown]
